FAERS Safety Report 17553660 (Version 1)
Quarter: 2020Q1

REPORT INFORMATION
  Report Type: Spontaneous
  Country: US (occurrence: US)
  Receive Date: 20200318
  Receipt Date: 20200318
  Transmission Date: 20200409
  Serious: No
  Sender: FDA-Public Use
  Company Number: US-GW PHARMA-202003USGW00904

PATIENT

DRUGS (1)
  1. EPIDIOLEX [Suspect]
     Active Substance: CANNABIDIOL
     Indication: SEIZURE
     Dosage: 190 MILLIGRAM, BID
     Route: 048
     Dates: start: 20181217

REACTIONS (3)
  - Seizure [Recovering/Resolving]
  - Fall [Unknown]
  - Atonic seizures [Recovering/Resolving]

NARRATIVE: CASE EVENT DATE: 20190902
